FAERS Safety Report 10872003 (Version 1)
Quarter: 2015Q1

REPORT INFORMATION
  Report Type: Spontaneous
  Country: US (occurrence: None)
  Receive Date: 20150223
  Receipt Date: 20150223
  Transmission Date: 20150721
  Serious: Yes (Life-Threatening, Disabling)
  Sender: FDA-Public Use
  Company Number: None

PATIENT
  Age: 27 Year
  Sex: Male
  Weight: 122.47 kg

DRUGS (2)
  1. ASPIRIN. [Concomitant]
     Active Substance: ASPIRIN
  2. CIPRO [Suspect]
     Active Substance: CIPROFLOXACIN HYDROCHLORIDE
     Indication: URINARY TRACT INFECTION
     Dosage: 1 TABLET TWICE DAILY TAKEN BY MOUTH
     Route: 048
     Dates: start: 20140920, end: 20141010

REACTIONS (7)
  - Neuropathy peripheral [None]
  - Burning sensation [None]
  - Paraesthesia [None]
  - Feeling abnormal [None]
  - Disturbance in attention [None]
  - Activities of daily living impaired [None]
  - Malaise [None]

NARRATIVE: CASE EVENT DATE: 20140920
